FAERS Safety Report 8383455-X (Version None)
Quarter: 2012Q2

REPORT INFORMATION
  Report Type: 
  Country: None (occurrence: None)
  Receive Date: 20120524
  Receipt Date: 20120518
  Transmission Date: 20120825
  Serious: Yes (Hospitalization)
  Sender: FDA-Public Use
  Company Number: PHHY2011FR46985

PATIENT
  Sex: Female
  Weight: 48 kg

DRUGS (6)
  1. ZOLPIDEM TARTRATE [Concomitant]
     Indication: INSOMNIA
     Dosage: 0.5 DF, QD
     Route: 048
  2. EVEROLIMUS [Suspect]
     Indication: RENAL CELL CARCINOMA
     Dosage: 10 MG, DAILY
     Route: 048
     Dates: start: 20110325, end: 20110524
  3. LEVOTHYROXINE SODIUM [Concomitant]
     Indication: HYPOTHYROIDISM
     Dosage: 75 UG, QD
     Dates: end: 20101201
  4. LINDILANE [Concomitant]
     Indication: BACK PAIN
     Dosage: 4 DF, QD
     Route: 048
     Dates: start: 20110401
  5. SOTALOL HCL [Concomitant]
     Indication: HYPERTENSION
     Dosage: 1.5 DF, QD
  6. INNOHEP [Concomitant]
     Indication: VENA CAVA THROMBOSIS
     Dosage: 1 DF, QD
     Route: 058

REACTIONS (2)
  - PNEUMOCYSTIS JIROVECI PNEUMONIA [None]
  - PYREXIA [None]
